FAERS Safety Report 22236218 (Version 2)
Quarter: 2023Q2

REPORT INFORMATION
  Report Type: Spontaneous
  Country: US (occurrence: US)
  Receive Date: 20230420
  Receipt Date: 20230504
  Transmission Date: 20230721
  Serious: Yes (Hospitalization, Other)
  Sender: FDA-Public Use
  Company Number: US-TEVA-2023-US-2877846

PATIENT
  Age: 52 Year
  Sex: Female

DRUGS (22)
  1. DOXORUBICIN [Suspect]
     Active Substance: DOXORUBICIN
     Indication: Sarcoma metastatic
     Dosage: 75 MG/M2 EVERY 21 DAYS (ALONG WITH DACARBAZINE)
     Route: 065
  2. DOXORUBICIN [Suspect]
     Active Substance: DOXORUBICIN
     Indication: Tuberous sclerosis complex
  3. DOXORUBICIN [Suspect]
     Active Substance: DOXORUBICIN
     Indication: Gene mutation
  4. SIROLIMUS [Suspect]
     Active Substance: SIROLIMUS
     Indication: Tuberous sclerosis complex
     Dosage: 5 MILLIGRAM DAILY; 5 MG DAILY IN EACH 3 WEEKS CYCLE
     Route: 065
     Dates: start: 20210929
  5. SIROLIMUS [Suspect]
     Active Substance: SIROLIMUS
     Indication: Sarcoma metastatic
     Dosage: 7 MILLIGRAM DAILY; 7 MG DAILY IN EACH 3 WEEKS CYCLE
     Route: 065
     Dates: start: 20220321
  6. SIROLIMUS [Suspect]
     Active Substance: SIROLIMUS
     Indication: Gene mutation
     Dosage: 5 MILLIGRAM DAILY; 5 MG DAILY IN EACH 3 WEEKS CYCLE (DOSE REDUCTION AFTER DRUG TOXICITY)
     Route: 065
     Dates: end: 20220404
  7. DACARBAZINE [Suspect]
     Active Substance: DACARBAZINE
     Indication: Tuberous sclerosis complex
     Dosage: 750 MG/M2 EVERY 21 DAYS (ALONG WITH DOXORUBICIN)
     Route: 065
  8. DACARBAZINE [Suspect]
     Active Substance: DACARBAZINE
     Indication: Sarcoma metastatic
  9. DACARBAZINE [Suspect]
     Active Substance: DACARBAZINE
     Indication: Gene mutation
  10. DOCETAXEL [Suspect]
     Active Substance: DOCETAXEL
     Indication: Tuberous sclerosis complex
     Dosage: 75 MG/M2 ON DAY 8 (ALONG WITH GEMCITABINE), EVERY 21 DAYS
     Route: 065
     Dates: start: 20200401
  11. DOCETAXEL [Suspect]
     Active Substance: DOCETAXEL
     Indication: Sarcoma metastatic
  12. DOCETAXEL [Suspect]
     Active Substance: DOCETAXEL
     Indication: Gene mutation
  13. GEMCITABINE [Suspect]
     Active Substance: GEMCITABINE
     Indication: Tuberous sclerosis complex
     Dosage: 900 MG/M2 ON DAY 1 AND DAY 8 (ALONG WITH DOCETAXEL), EVERY 21 DAYS
     Route: 065
     Dates: start: 20200401
  14. GEMCITABINE [Suspect]
     Active Substance: GEMCITABINE
     Indication: Sarcoma metastatic
     Dosage: 800 MG/M2 ON DAY 1 AND DAY 8 (ALONG WITH SIROLIMUS), EVERY 21 DAYS
     Route: 065
     Dates: start: 20210929
  15. GEMCITABINE [Suspect]
     Active Substance: GEMCITABINE
     Indication: Gene mutation
     Dosage: 900 MG/M2  ON DAY 1 AND DAY 8 (ALONG WITH SIROLIMUS), EVERY 21 DAYS
     Route: 065
     Dates: start: 20220321, end: 20220404
  16. SIROLIMUS [Suspect]
     Active Substance: SIROLIMUS
     Indication: Tuberous sclerosis complex
     Dosage: 100 MG/M2 ON DAY 1 AND DAY 8 EVERY 21 DAYS
     Route: 065
  17. SIROLIMUS [Suspect]
     Active Substance: SIROLIMUS
     Indication: Sarcoma metastatic
  18. SIROLIMUS [Suspect]
     Active Substance: SIROLIMUS
     Indication: Gene mutation
  19. NIRAPARIB [Suspect]
     Active Substance: NIRAPARIB
     Indication: Tuberous sclerosis complex
     Route: 065
  20. NIRAPARIB [Suspect]
     Active Substance: NIRAPARIB
     Indication: Gene mutation
  21. NIRAPARIB [Suspect]
     Active Substance: NIRAPARIB
     Indication: Sarcoma metastatic
  22. MORPHINE [Concomitant]
     Active Substance: MORPHINE
     Indication: Product used for unknown indication
     Route: 065

REACTIONS (6)
  - Drug ineffective [Unknown]
  - Neutropenia [Unknown]
  - Hypertriglyceridaemia [Unknown]
  - Rash maculo-papular [Unknown]
  - Toxicity to various agents [Unknown]
  - Off label use [Unknown]
